FAERS Safety Report 24621904 (Version 3)
Quarter: 2025Q1

REPORT INFORMATION
  Report Type: Spontaneous
  Country: US (occurrence: US)
  Receive Date: 20241114
  Receipt Date: 20250121
  Transmission Date: 20250408
  Serious: No
  Sender: SANOFI AVENTIS
  Company Number: US-SA-2024SA330160

PATIENT
  Age: 70 Year
  Sex: Male

DRUGS (10)
  1. DUPIXENT [Suspect]
     Active Substance: DUPILUMAB
     Indication: Asthma
     Dosage: 300 MG, QOW
     Route: 058
  2. ADVAIR HFA [Concomitant]
     Active Substance: FLUTICASONE PROPIONATE\SALMETEROL XINAFOATE
  3. ALBUTEROL [Concomitant]
     Active Substance: ALBUTEROL
  4. OXYCODONE [Concomitant]
     Active Substance: OXYCODONE
  5. PANTOPRAZOLE [Concomitant]
     Active Substance: PANTOPRAZOLE
  6. SPIRIVA [Concomitant]
     Active Substance: TIOTROPIUM BROMIDE MONOHYDRATE
  7. TRAZODONE HCL [Concomitant]
     Active Substance: TRAZODONE HYDROCHLORIDE
  8. VALSARTAN [Concomitant]
     Active Substance: VALSARTAN
  9. GABAPENTIN [Concomitant]
     Active Substance: GABAPENTIN
  10. FLUTICASONE [Concomitant]
     Active Substance: FLUTICASONE

REACTIONS (6)
  - Impaired quality of life [Unknown]
  - Dyspnoea [Not Recovered/Not Resolved]
  - Therapeutic response decreased [Not Recovered/Not Resolved]
  - Middle insomnia [Not Recovered/Not Resolved]
  - Injection site pain [Unknown]
  - Injection site swelling [Unknown]
